FAERS Safety Report 15622759 (Version 2)
Quarter: 2019Q2

REPORT INFORMATION
  Report Type: Spontaneous
  Country: US (occurrence: US)
  Receive Date: 20181115
  Receipt Date: 20190628
  Transmission Date: 20190711
  Serious: No
  Sender: FDA-Public Use
  Company Number: US-ACTELION-A-NJ2018-180985

PATIENT
  Age: 75 Year
  Sex: Female

DRUGS (4)
  1. OPSUMIT [Suspect]
     Active Substance: MACITENTAN
     Indication: PULMONARY ARTERIAL HYPERTENSION
     Dosage: 10 MG, QD
     Route: 048
     Dates: start: 20180129
  2. TYVASO [Concomitant]
     Active Substance: TREPROSTINIL
     Dosage: UNK
     Dates: end: 201810
  3. ORENITRAM [Concomitant]
     Active Substance: TREPROSTINIL
     Dosage: 1.5 MG, TID
     Dates: start: 20181001
  4. RITUXAN [Concomitant]
     Active Substance: RITUXIMAB
     Indication: RHEUMATOID ARTHRITIS

REACTIONS (8)
  - Rheumatoid arthritis [Unknown]
  - Cough [Unknown]
  - Condition aggravated [Unknown]
  - Pulmonary arterial hypertension [Unknown]
  - Mouth ulceration [Unknown]
  - Nasopharyngitis [Unknown]
  - Fatigue [Unknown]
  - Dyspnoea [Unknown]

NARRATIVE: CASE EVENT DATE: 20190519
